FAERS Safety Report 9364868 (Version 1)
Quarter: 2013Q2

REPORT INFORMATION
  Report Type: Spontaneous
  Country: BR (occurrence: BR)
  Receive Date: 20130624
  Receipt Date: 20130624
  Transmission Date: 20140414
  Serious: Yes (Hospitalization)
  Sender: FDA-Public Use
  Company Number: BR-GLAXOSMITHKLINE-A1028066A

PATIENT
  Age: 61 Year
  Sex: Male
  Weight: 78 kg

DRUGS (1)
  1. COMBODART [Suspect]
     Indication: BENIGN PROSTATIC HYPERPLASIA
     Dosage: 1TAB PER DAY
     Route: 048
     Dates: start: 20130610, end: 20130610

REACTIONS (7)
  - Eye pain [Recovered/Resolved]
  - Ocular hyperaemia [Unknown]
  - Headache [Unknown]
  - Paraesthesia [Unknown]
  - Abdominal pain [Unknown]
  - Nausea [Unknown]
  - Dizziness [Unknown]
